FAERS Safety Report 4282565-6 (Version None)
Quarter: 2004Q1

REPORT INFORMATION
  Report Type: 
  Country: None (occurrence: None)
  Receive Date: 20040129
  Receipt Date: 20040116
  Transmission Date: 20041129
  Serious: Yes (Hospitalization)
  Sender: FDA-Public Use
  Company Number: US-JNJFOC-20040103345

PATIENT
  Age: 39 Year
  Sex: Female
  Weight: 59.4212 kg

DRUGS (4)
  1. INFLIXIMAB (INFLIXIMAB, RECOMBINANT) LYOPHILIZED POWDER [Suspect]
     Indication: CROHN'S DISEASE
     Dosage: 5 MG/KG, INTRAVENOUS
     Route: 042
     Dates: start: 20030519
  2. AZATHIOPRINE [Concomitant]
  3. MESALAMINE (MESALAMINE) [Concomitant]
  4. PREDNISOLONE [Concomitant]

REACTIONS (3)
  - ABDOMINAL ADHESIONS [None]
  - ABDOMINAL PAIN [None]
  - INTESTINAL OBSTRUCTION [None]
